FAERS Safety Report 16363637 (Version 1)
Quarter: 2019Q2

REPORT INFORMATION
  Report Type: Report from Study
  Country: GB (occurrence: GB)
  Receive Date: 20190528
  Receipt Date: 20190528
  Transmission Date: 20190711
  Serious: Yes (Hospitalization)
  Sender: FDA-Public Use
  Company Number: GB-MYLANLABS-2019M1049688

PATIENT
  Age: 56 Year
  Sex: Male

DRUGS (3)
  1. TOBI PODHALER [Suspect]
     Active Substance: TOBRAMYCIN
     Indication: PRODUCT USED FOR UNKNOWN INDICATION
     Dosage: 224 MILLIGRAM, QD (112 MG, BID (ALTERNATE MONTHS)
     Route: 055
     Dates: start: 20140108
  2. COLOBREATHE [Concomitant]
     Active Substance: COLISTIMETHATE SODIUM
     Indication: PRODUCT USED FOR UNKNOWN INDICATION
     Dosage: 250 MILLIGRAM, QD (125 MG, BID TWICE A DAY ALTERNATE MONTHS)
     Route: 055
     Dates: start: 201603
  3. MANNITOL. [Concomitant]
     Active Substance: MANNITOL
     Indication: PRODUCT USED FOR UNKNOWN INDICATION
     Dosage: 80 MILLIGRAM, QD (40 MG, BID)
     Route: 055

REACTIONS (1)
  - Lower respiratory tract infection [Not Recovered/Not Resolved]
